FAERS Safety Report 20029863 (Version 1)
Quarter: 2021Q4

REPORT INFORMATION
  Report Type: Spontaneous
  Country: FR (occurrence: FR)
  Receive Date: 20211103
  Receipt Date: 20211103
  Transmission Date: 20220303
  Serious: Yes (Other)
  Sender: FDA-Public Use
  Company Number: FR-ANIPHARMA-2021-FR-000221

PATIENT
  Age: 80 Year
  Sex: Male
  Weight: 77 kg

DRUGS (9)
  1. CANDESARTAN CILEXETIL [Suspect]
     Active Substance: CANDESARTAN CILEXETIL
     Indication: Hypertension
     Dosage: 8 MG QD
     Route: 048
  2. MIRTAZAPINE [Suspect]
     Active Substance: MIRTAZAPINE
     Dosage: 15 MG QD
     Route: 048
     Dates: start: 20210830
  3. RISPERIDONE [Concomitant]
     Active Substance: RISPERIDONE
     Route: 065
  4. MEMANTINE HCS [Concomitant]
     Route: 065
  5. OXAZEPAM [Concomitant]
     Active Substance: OXAZEPAM
     Route: 065
  6. VALPROATE SODIUM [Suspect]
     Active Substance: VALPROATE SODIUM
     Dosage: 1000 MG QD
     Route: 048
  7. KARDEGIC [Suspect]
     Active Substance: ASPIRIN DL-LYSINE
     Dosage: 160 MG QD
     Route: 048
  8. CHOLECALCIFEROL [Concomitant]
     Active Substance: CHOLECALCIFEROL
     Route: 065
  9. TRANSIPEG [Concomitant]
     Route: 065

REACTIONS (2)
  - Pancytopenia [Not Recovered/Not Resolved]
  - Hypotension [Not Recovered/Not Resolved]

NARRATIVE: CASE EVENT DATE: 20210905
